FAERS Safety Report 8525360-1 (Version None)
Quarter: 2012Q3

REPORT INFORMATION
  Report Type: 
  Country: None (occurrence: None)
  Receive Date: 20120720
  Receipt Date: 20120719
  Transmission Date: 20120928
  Serious: Yes (Life-Threatening, Hospitalization)
  Sender: FDA-Public Use
  Company Number: PHHO2012CA010352

PATIENT
  Sex: Female
  Weight: 79.4 kg

DRUGS (14)
  1. WELLBUTRIN [Suspect]
     Indication: DEPRESSION
     Dosage: 150 MG QPM
     Dates: start: 20080101
  2. CYMBALTA [Suspect]
     Indication: DEPRESSION
     Dosage: UNK
     Dates: start: 20120210
  3. PLACEBO [Suspect]
     Indication: DIFFUSE LARGE B-CELL LYMPHOMA
     Dosage: DOUBLE BLINDED
     Route: 048
     Dates: start: 20111024, end: 20120711
  4. LEVOTHYROXINE SODIUM [Suspect]
     Indication: HYPOTHYROIDISM
     Dosage: 150 MG QPM
     Dates: start: 20080101
  5. BLINDED NO TREATMENT RECEIVED [Suspect]
     Dosage: DOUBLE BLINDED
     Route: 048
  6. INSULIN [Suspect]
     Indication: DIABETES MELLITUS
     Dosage: 20 UAM 4 UPM
     Dates: start: 20061001
  7. TRAZODONE HYDROCHLORIDE [Suspect]
     Indication: DEPRESSION
     Dosage: 100 MG, QHS
     Dates: start: 20080101
  8. CARBAMAZEPINE [Suspect]
     Indication: CONVULSION
     Dosage: 200 MG, TID
     Dates: start: 20010101
  9. AFINITOR [Suspect]
     Indication: DIFFUSE LARGE B-CELL LYMPHOMA
     Dosage: DOUBLE BLINDED
     Route: 048
     Dates: start: 20111024, end: 20120711
  10. BLINDED NO TREATMENT RECEIVED [Suspect]
     Indication: DIFFUSE LARGE B-CELL LYMPHOMA
     Dosage: DOUBLE BLINDED
     Route: 048
     Dates: start: 20111024, end: 20120711
  11. LIPITOR [Suspect]
     Indication: HYPERCHOLESTEROLAEMIA
     Dosage: 40 MG, QD
     Route: 048
     Dates: start: 20010101
  12. LIPITOR [Suspect]
     Indication: HYPERTRIGLYCERIDAEMIA
  13. AFINITOR [Suspect]
     Dosage: DOUBLE BLINDED
     Route: 048
  14. PLACEBO [Suspect]
     Dosage: DOUBLE BLINDED
     Route: 048

REACTIONS (1)
  - SICK SINUS SYNDROME [None]
